FAERS Safety Report 8570833-9 (Version None)
Quarter: 2012Q3

REPORT INFORMATION
  Report Type: 
  Country: None (occurrence: None)
  Receive Date: 20120806
  Receipt Date: 20120731
  Transmission Date: 20120928
  Serious: No
  Sender: FDA-Public Use
  Company Number: US-009507513-1208USA000505

PATIENT

DRUGS (1)
  1. PROSCAR [Suspect]
     Dosage: UNK
     Route: 048
     Dates: start: 20091001, end: 20110401

REACTIONS (4)
  - APATHY [None]
  - ERECTILE DYSFUNCTION [None]
  - DEPRESSED MOOD [None]
  - EJACULATION FAILURE [None]
